FAERS Safety Report 21169856 (Version 1)
Quarter: 2022Q3

REPORT INFORMATION
  Report Type: Report from Study
  Country: GB (occurrence: GB)
  Receive Date: 20220804
  Receipt Date: 20220804
  Transmission Date: 20221027
  Serious: Yes (Hospitalization)
  Sender: FDA-Public Use
  Company Number: GB-TEVA-2022-GB-2059926

PATIENT

DRUGS (1)
  1. EVEROLIMUS [Suspect]
     Active Substance: EVEROLIMUS
     Indication: Neuroendocrine tumour
     Route: 065

REACTIONS (3)
  - Pneumonitis [Unknown]
  - Acute respiratory failure [Unknown]
  - Hypoxia [Unknown]
